FAERS Safety Report 8260313-2 (Version None)
Quarter: 2012Q2

REPORT INFORMATION
  Report Type: 
  Country: None (occurrence: None)
  Receive Date: 20120404
  Receipt Date: 20120322
  Transmission Date: 20120825
  Serious: Yes (Other)
  Sender: FDA-Public Use
  Company Number: US-ELI_LILLY_AND_COMPANY-US201203007808

PATIENT
  Age: 59 Year
  Sex: Female

DRUGS (5)
  1. CYMBALTA [Suspect]
     Indication: DEPRESSION
     Dosage: 30 MG, QD
     Dates: start: 20110901
  2. CYMBALTA [Suspect]
     Dosage: 30 MG, QD
     Dates: start: 20120221
  3. CYMBALTA [Suspect]
     Dosage: 60 MG, QD
     Dates: end: 20111001
  4. CYMBALTA [Suspect]
     Dosage: 60 MG, QD
     Dates: start: 20120221
  5. XANAX [Concomitant]
     Dosage: UNK, PRN

REACTIONS (5)
  - ASTHMA [None]
  - SEASONAL ALLERGY [None]
  - LOGORRHOEA [None]
  - INTENTIONAL DRUG MISUSE [None]
  - POLYP [None]
